FAERS Safety Report 24280758 (Version 1)
Quarter: 2024Q3

REPORT INFORMATION
  Report Type: Spontaneous
  Country: BR (occurrence: BR)
  Receive Date: 20240904
  Receipt Date: 20240904
  Transmission Date: 20241016
  Serious: Yes (Hospitalization)
  Sender: JOHNSON AND JOHNSON
  Company Number: BR-JNJFOC-20240900386

PATIENT
  Sex: Female

DRUGS (1)
  1. INFLIXIMAB [Suspect]
     Active Substance: INFLIXIMAB
     Indication: Behcet^s syndrome
     Route: 041
     Dates: start: 202208

REACTIONS (5)
  - Hospitalisation [Unknown]
  - Aphasia [Unknown]
  - Movement disorder [Recovered/Resolved]
  - Feeding disorder [Recovered/Resolved]
  - Off label use [Unknown]
